FAERS Safety Report 4915325-0 (Version None)
Quarter: 2006Q1

REPORT INFORMATION
  Report Type: 
  Country: None (occurrence: None)
  Receive Date: 20060217
  Receipt Date: 20060207
  Transmission Date: 20060701
  Serious: Yes (Hospitalization)
  Sender: FDA-Public Use
  Company Number: FR-GLAXOSMITHKLINE-B0411728A

PATIENT
  Age: 39 Year
  Sex: Female

DRUGS (2)
  1. AUGMENTIN '125' [Suspect]
     Dosage: 1G TWICE PER DAY
     Route: 048
     Dates: start: 20051003, end: 20051007
  2. PREVISCAN [Concomitant]
     Route: 048

REACTIONS (10)
  - BACTERIAL INFECTION [None]
  - DRY SKIN [None]
  - ESCHERICHIA INFECTION [None]
  - FACE OEDEMA [None]
  - PRURITUS [None]
  - PYREXIA [None]
  - RASH ERYTHEMATOUS [None]
  - SKIN EXFOLIATION [None]
  - SPEECH DISORDER [None]
  - TOXIC SKIN ERUPTION [None]
